FAERS Safety Report 5682403-0 (Version None)
Quarter: 2008Q1

REPORT INFORMATION
  Report Type: 
  Country: None (occurrence: None)
  Receive Date: 20080327
  Receipt Date: 20080320
  Transmission Date: 20080703
  Serious: Yes (Hospitalization)
  Sender: FDA-Public Use
  Company Number: US-AVENTIS-200811843US

PATIENT
  Age: 39 Year
  Sex: Female

DRUGS (2)
  1. LANTUS [Suspect]
     Dates: start: 20080318
  2. FAST ACTING [Concomitant]
     Dosage: DOSE: UNK

REACTIONS (4)
  - BLOOD GLUCOSE INCREASED [None]
  - EYE OEDEMA [None]
  - HOSPITALISATION [None]
  - OEDEMA PERIPHERAL [None]
